FAERS Safety Report 9353189 (Version 2)
Quarter: 2013Q3

REPORT INFORMATION
  Report Type: Spontaneous
  Country: US (occurrence: US)
  Receive Date: 20130618
  Receipt Date: 20130725
  Transmission Date: 20140515
  Serious: Yes (Other)
  Sender: FDA-Public Use
  Company Number: US-PFIZER INC-2013181033

PATIENT
  Age: 62 Year
  Sex: Male
  Weight: 48.98 kg

DRUGS (11)
  1. CHANTIX [Suspect]
     Indication: SMOKING CESSATION THERAPY
     Dosage: 0.5 MG DAILY
     Dates: start: 20130612, end: 20130613
  2. SPIRIVA [Interacting]
     Indication: CHRONIC OBSTRUCTIVE PULMONARY DISEASE
     Dosage: UNK, DAILY
  3. SPIRIVA [Interacting]
     Indication: EMPHYSEMA
  4. THEOPHYLLINE [Interacting]
     Indication: CHRONIC OBSTRUCTIVE PULMONARY DISEASE
     Dosage: UNK, 2X/DAY
  5. THEOPHYLLINE [Interacting]
     Indication: EMPHYSEMA
  6. DALIRESP [Interacting]
     Indication: CHRONIC OBSTRUCTIVE PULMONARY DISEASE
     Dosage: UNK, DAILY
  7. DALIRESP [Interacting]
     Indication: EMPHYSEMA
  8. ALBUTEROL [Interacting]
     Indication: CHRONIC OBSTRUCTIVE PULMONARY DISEASE
     Dosage: UNK
  9. ALBUTEROL [Interacting]
     Indication: EMPHYSEMA
  10. SYMBICORT [Interacting]
     Indication: CHRONIC OBSTRUCTIVE PULMONARY DISEASE
     Dosage: UNK, 2X/DAY
  11. SYMBICORT [Interacting]
     Indication: EMPHYSEMA

REACTIONS (6)
  - Drug interaction [Unknown]
  - Dyspnoea [Unknown]
  - Tachycardia [Unknown]
  - Chronic obstructive pulmonary disease [Not Recovered/Not Resolved]
  - Nausea [Unknown]
  - Nervousness [Not Recovered/Not Resolved]
